FAERS Safety Report 21021652 (Version 1)
Quarter: 2022Q2

REPORT INFORMATION
  Report Type: Spontaneous
  Country: CN (occurrence: CN)
  Receive Date: 20220629
  Receipt Date: 20220629
  Transmission Date: 20220720
  Serious: Yes (Other)
  Sender: FDA-Public Use
  Company Number: None

PATIENT
  Age: 55 Year
  Sex: Female
  Weight: 60 kg

DRUGS (13)
  1. CYCLOPHOSPHAMIDE [Suspect]
     Active Substance: CYCLOPHOSPHAMIDE
     Indication: Invasive breast carcinoma
     Dosage: (ENDOXAN) 0.2G 0.8G INTRAVENOUS DRIP (0.9% SODIUM CHLORIDE INJECTION 100ML)
     Route: 041
     Dates: start: 20220603, end: 20220603
  2. CYCLOPHOSPHAMIDE [Suspect]
     Active Substance: CYCLOPHOSPHAMIDE
     Indication: Hormone receptor negative HER2 positive breast cancer
     Dosage: UNK, QD,DOSE RE-INTRODUCED
     Route: 041
  3. SODIUM CHLORIDE [Suspect]
     Active Substance: SODIUM CHLORIDE
     Indication: Medication dilution
     Dosage: ENDOXAN 0.2G 0.8G INTRAVENOUS DRIP 0.9% SODIUM CHLORIDE INJECTION 100ML
     Route: 041
     Dates: start: 20220603, end: 20220603
  4. SODIUM CHLORIDE [Suspect]
     Active Substance: SODIUM CHLORIDE
     Dosage: DOSE RE-INTRODUCED
     Route: 041
  5. DEXRAZOXANE [Suspect]
     Active Substance: DEXRAZOXANE
     Indication: Invasive breast carcinoma
     Dosage: AONUOXIXAN, 0.25G 500MG IVGTT + 0.9% SODIUM CHLORIDE INJECTION 250ML (SHISIYAO)
     Route: 041
     Dates: start: 20220603, end: 20220603
  6. DEXRAZOXANE [Suspect]
     Active Substance: DEXRAZOXANE
     Indication: Hormone receptor negative HER2 positive breast cancer
     Dosage: UNK, QD,DOSE RE-INTRODUCED
     Route: 041
  7. SODIUM CHLORIDE [Suspect]
     Active Substance: SODIUM CHLORIDE
     Indication: Medication dilution
     Dosage: 250 ML, 0.9% SODIUM CHLORIDE INJECTION 250ML (SHISIYAO) + DEXRAZONE FOR INJECTION
     Route: 041
     Dates: start: 20220603, end: 20220603
  8. SODIUM CHLORIDE [Suspect]
     Active Substance: SODIUM CHLORIDE
     Dosage: DOSE RE-INTRODUCED
     Route: 041
  9. EPIRUBICIN HYDROCHLORIDE [Suspect]
     Active Substance: EPIRUBICIN HYDROCHLORIDE
     Indication: Invasive breast carcinoma
     Dosage: 10 MG, 70 MG, QD, EPIRUBICIN +0.9% SODIUM CHLORIDE INJECTION 100ML (OTSUKA SOFT BAG)
     Route: 041
     Dates: start: 20220603, end: 20220603
  10. EPIRUBICIN HYDROCHLORIDE [Suspect]
     Active Substance: EPIRUBICIN HYDROCHLORIDE
     Indication: Hormone receptor negative HER2 positive breast cancer
     Dosage: UNK, QD,DOSE RE-INTRODUCED
     Route: 041
  11. SODIUM CHLORIDE [Suspect]
     Active Substance: SODIUM CHLORIDE
     Indication: Medication dilution
     Dosage: EPIRUBICIN + 0.9% SODIUM CHLORIDE (100 ML) (OTSUKA SOFT BAG)
     Route: 041
     Dates: start: 20220603, end: 20220603
  12. SODIUM CHLORIDE [Suspect]
     Active Substance: SODIUM CHLORIDE
     Dosage: DOSE RE-INTRODUCED UNK
     Route: 041
  13. STERILE WATER [Suspect]
     Active Substance: WATER
     Indication: Medication dilution
     Dosage: STERILE WATER FOR INJECTION 500ML (SHIYAOYINHU)
     Route: 041
     Dates: start: 20220603

REACTIONS (1)
  - Gastrointestinal disorder [Recovering/Resolving]

NARRATIVE: CASE EVENT DATE: 20220603
